FAERS Safety Report 15264039 (Version 1)
Quarter: 2018Q3

REPORT INFORMATION
  Report Type: Spontaneous
  Country: US (occurrence: US)
  Receive Date: 20180720
  Receipt Date: 20180720
  Transmission Date: 20181010
  Serious: Yes (Hospitalization)
  Sender: FDA-Public Use
  Company Number: None

PATIENT
  Age: 76 Year
  Sex: Female

DRUGS (16)
  1. SILDENAFIL 20MG TAB [Suspect]
     Active Substance: SILDENAFIL
     Indication: PULMONARY ARTERIAL HYPERTENSION
     Route: 048
     Dates: start: 20180302
  2. ATORVASTATIN [Concomitant]
     Active Substance: ATORVASTATIN
  3. CARTIA XT [Concomitant]
     Active Substance: DILTIAZEM HYDROCHLORIDE
  4. DOK [Concomitant]
     Active Substance: DOCUSATE SODIUM
  5. POTASSIUM CHLORIDE. [Concomitant]
     Active Substance: POTASSIUM CHLORIDE
  6. LOSARTAN POT [Concomitant]
     Active Substance: LOSARTAN POTASSIUM
  7. ATENOLOL. [Concomitant]
     Active Substance: ATENOLOL
  8. ATORVASTATIN [Concomitant]
     Active Substance: ATORVASTATIN
  9. FUROSEMIDE. [Concomitant]
     Active Substance: FUROSEMIDE
  10. SILDENAFIL. [Concomitant]
     Active Substance: SILDENAFIL
  11. FERROUS SULFATE. [Concomitant]
     Active Substance: FERROUS SULFATE
  12. SPIRONOLACTONE. [Concomitant]
     Active Substance: SPIRONOLACTONE
  13. METOPROL SUC [Concomitant]
  14. WARFARIN [Concomitant]
     Active Substance: WARFARIN
  15. ROPINIROLE. [Concomitant]
     Active Substance: ROPINIROLE
  16. PROAIR HFA [Concomitant]
     Active Substance: ALBUTEROL SULFATE

REACTIONS (4)
  - Dyspnoea [None]
  - Condition aggravated [None]
  - Atrial fibrillation [None]
  - Anaemia [None]

NARRATIVE: CASE EVENT DATE: 20180715
